FAERS Safety Report 4559258-0 (Version None)
Quarter: 2005Q1

REPORT INFORMATION
  Report Type: 
  Country: None (occurrence: None)
  Receive Date: 20050124
  Receipt Date: 20040805
  Transmission Date: 20050727
  Serious: Yes (Hospitalization)
  Sender: FDA-Public Use
  Company Number: JP-ROCHE-377180

PATIENT
  Age: 24 Year
  Sex: Female

DRUGS (4)
  1. TAMIFLU [Suspect]
     Indication: INFLUENZA
     Route: 048
     Dates: start: 20040226, end: 20040301
  2. NICHOLASE [Concomitant]
     Route: 048
     Dates: start: 20040226, end: 20040228
  3. COLDRIN [Concomitant]
     Route: 048
     Dates: start: 20040226, end: 20040228
  4. CEFZON [Concomitant]
     Dates: start: 20040226, end: 20040228

REACTIONS (1)
  - MANIA [None]
